FAERS Safety Report 11130333 (Version 1)
Quarter: 2015Q2

REPORT INFORMATION
  Report Type: Spontaneous
  Country: TW (occurrence: TW)
  Receive Date: 20150522
  Receipt Date: 20150522
  Transmission Date: 20150821
  Serious: Yes (Hospitalization)
  Sender: FDA-Public Use
  Company Number: TW-ALVOGEN-2015AL002114

PATIENT
  Age: 38 Year
  Sex: Male

DRUGS (4)
  1. DISULFIRAM. [Suspect]
     Active Substance: DISULFIRAM
     Indication: ALCOHOLISM
  2. GRISEOFULVIN. [Interacting]
     Active Substance: GRISEOFULVIN
     Indication: ONYCHOMYCOSIS
  3. ESCITALOPRAM [Concomitant]
     Active Substance: ESCITALOPRAM OXALATE
     Indication: DEPRESSION
  4. GRISEOFULVIN. [Interacting]
     Active Substance: GRISEOFULVIN
     Indication: ONYCHOMYCOSIS

REACTIONS (2)
  - Delirium [Recovered/Resolved]
  - Drug interaction [Recovered/Resolved]
